FAERS Safety Report 10218773 (Version 2)
Quarter: 2014Q2

REPORT INFORMATION
  Report Type: Spontaneous
  Country: JP (occurrence: JP)
  Receive Date: 20140605
  Receipt Date: 20140616
  Transmission Date: 20141212
  Serious: Yes (Disabling, Other)
  Sender: FDA-Public Use
  Company Number: JP-PFIZER INC-2014149192

PATIENT
  Age: 77 Year
  Sex: Male

DRUGS (1)
  1. VFEND [Suspect]
     Dosage: 400 MG, DAILY
     Route: 048
     Dates: start: 201405

REACTIONS (3)
  - Retinal tear [Not Recovered/Not Resolved]
  - Blindness [Not Recovered/Not Resolved]
  - Vitreous floaters [Unknown]
